FAERS Safety Report 23375741 (Version 1)
Quarter: 2024Q1

REPORT INFORMATION
  Report Type: Spontaneous
  Country: IN (occurrence: IN)
  Receive Date: 20240107
  Receipt Date: 20240107
  Transmission Date: 20240410
  Serious: Yes (Other)
  Sender: FDA-Public Use
  Company Number: IN-MLMSERVICE-20231227-4745003-1

PATIENT
  Age: 40 Year
  Sex: Female

DRUGS (4)
  1. PREDNISOLONE ACETATE [Suspect]
     Active Substance: PREDNISOLONE ACETATE
     Indication: Eye inflammation
     Dosage: TIME INTERVAL: 0.16666667 DAYS
     Route: 061
  2. AMIKACIN [Concomitant]
     Active Substance: AMIKACIN
     Indication: Infective scleritis
     Dosage: 2.5%  FORTIFIED
     Route: 061
  3. PREDNISOLONE [Concomitant]
     Active Substance: PREDNISOLONE
     Indication: Eye inflammation
     Route: 048
  4. SULFAMETHOXAZOLE\TRIMETHOPRIM [Concomitant]
     Active Substance: SULFAMETHOXAZOLE\TRIMETHOPRIM
     Indication: Nocardiosis
     Dosage: 800 MG/160 MG
     Route: 048

REACTIONS (2)
  - Infective scleritis [Recovered/Resolved]
  - Nocardiosis [Recovered/Resolved]
